FAERS Safety Report 6696680-0 (Version None)
Quarter: 2010Q2

REPORT INFORMATION
  Report Type: 
  Country: None (occurrence: None)
  Receive Date: 20100421
  Receipt Date: 20091021
  Transmission Date: 20101027
  Serious: No
  Sender: FDA-Public Use
  Company Number: US-000043

PATIENT
  Sex: Female
  Weight: 20.4119 kg

DRUGS (3)
  1. KUVAN [Suspect]
     Indication: PHENYLKETONURIA
     Dosage: 300 MG QD ORAL
     Route: 048
     Dates: start: 20090201
  2. PREDNISONE [Concomitant]
  3. NUTRIENTS WITHOUT PHENYLALANINE [Concomitant]

REACTIONS (4)
  - AMINO ACID LEVEL INCREASED [None]
  - ASTHMA [None]
  - DRUG INTERACTION [None]
  - UPPER RESPIRATORY TRACT INFECTION [None]
